FAERS Safety Report 22102558 (Version 1)
Quarter: 2023Q1

REPORT INFORMATION
  Report Type: Spontaneous
  Country: AR (occurrence: AR)
  Receive Date: 20230316
  Receipt Date: 20230316
  Transmission Date: 20230418
  Serious: Yes (Hospitalization)
  Sender: FDA-Public Use
  Company Number: AR-STRIDES ARCOLAB LIMITED-2023SP003844

PATIENT
  Age: 48 Year
  Sex: Female

DRUGS (3)
  1. MORPHINE SULFATE [Suspect]
     Active Substance: MORPHINE SULFATE
     Indication: Pain
     Dosage: UNK; HIGH DOSE
     Route: 065
  2. PREGABALIN [Concomitant]
     Active Substance: PREGABALIN
     Indication: Pain
     Dosage: UNK
     Route: 065
  3. SUNITINIB [Concomitant]
     Active Substance: SUNITINIB
     Indication: Soft tissue sarcoma
     Dosage: UNK
     Route: 065

REACTIONS (1)
  - Cholestasis [Recovered/Resolved]
